FAERS Safety Report 8341685-7 (Version None)
Quarter: 2012Q2

REPORT INFORMATION
  Report Type: 
  Country: None (occurrence: None)
  Receive Date: 20120507
  Receipt Date: 20120504
  Transmission Date: 20120825
  Serious: Yes (Death)
  Sender: FDA-Public Use
  Company Number: US-JNJFOC-2007329632

PATIENT
  Age: 12 Month
  Sex: Male

DRUGS (2)
  1. DIPHENHYDRAMINE HCL [Suspect]
     Indication: PRODUCT USED FOR UNKNOWN INDICATION
     Dosage: DAILY DOSE TEXT: ESTIMATED 32 PILLS AT ONCE
     Route: 048
  2. DIPHENHYDRAMINE HCL [Suspect]
     Route: 048

REACTIONS (8)
  - STATUS EPILEPTICUS [None]
  - CARDIAC ARREST [None]
  - HYPOTENSION [None]
  - SINUS TACHYCARDIA [None]
  - BRADYCARDIA [None]
  - VOMITING [None]
  - WRONG DRUG ADMINISTERED [None]
  - ACCIDENTAL OVERDOSE [None]
